FAERS Safety Report 7928347-2 (Version None)
Quarter: 2011Q4

REPORT INFORMATION
  Report Type: 
  Country: None (occurrence: None)
  Receive Date: 20111118
  Receipt Date: 20111107
  Transmission Date: 20120403
  Serious: Yes (Hospitalization)
  Sender: FDA-Public Use
  Company Number: PHHY2011FR098847

PATIENT
  Sex: Male

DRUGS (4)
  1. VALSARTAN  AND HYDROCHLOROTHIAZIDE [Suspect]
     Dosage: 1 DF, DAILY
     Route: 048
     Dates: end: 20110909
  2. ZOLPIDEM TARTRATE [Concomitant]
     Dosage: 1 DF, DAILY
     Route: 048
  3. CRESTOR [Concomitant]
     Dosage: 1 DF, DAILY
     Route: 048
  4. SPIRONOLACTONE [Suspect]
     Dosage: 1 DF, UNK
     Route: 048
     Dates: end: 20110909

REACTIONS (4)
  - RENAL FAILURE ACUTE [None]
  - METABOLIC ALKALOSIS [None]
  - HYPOKALAEMIA [None]
  - DEHYDRATION [None]
